FAERS Safety Report 6050728-5 (Version None)
Quarter: 2009Q1

REPORT INFORMATION
  Report Type: 
  Country: None (occurrence: None)
  Receive Date: 20090121
  Receipt Date: 20090105
  Transmission Date: 20090719
  Serious: Yes (Hospitalization)
  Sender: FDA-Public Use
  Company Number: 2008S1019150

PATIENT
  Age: 34 Year
  Sex: Male

DRUGS (9)
  1. CLARITHROMYCIN [Suspect]
  2. COLOMYCIN (COLISTIN) [Suspect]
     Indication: DRUG USE FOR UNKNOWN INDICATION
     Dosage: INTRAVENOUS
     Route: 042
  3. INTERFERON GAMMA (INTERFERON GAMMA) [Suspect]
     Indication: PSEUDOMONAS INFECTION
     Dosage: SUBCUTANROUS
     Route: 058
  4. MEROPENEM (MEROPENEM) [Suspect]
     Indication: DRUG USE FOR UNKNOWN INDICATION
     Dosage: INTRAVENOUS
     Route: 042
  5. MINOCYCLINE HCL [Suspect]
     Indication: PSEUDOMONAS INFECTION
  6. OMEPRAZOLE [Suspect]
     Indication: GASTROOESOPHAGEAL REFLUX DISEASE
  7. TOBRAMYCIN [Suspect]
     Indication: PSEUDOMONAS INFECTION
  8. AZITHROMYCIN [Suspect]
     Indication: DRUG USE FOR UNKNOWN INDICATION
  9. CIPROFLOXACIN [Suspect]
     Indication: DRUG USE FOR UNKNOWN INDICATION
     Dosage: ORAL
     Route: 048

REACTIONS (1)
  - CLOSTRIDIUM DIFFICILE COLITIS [None]
